FAERS Safety Report 9442393 (Version 1)
Quarter: 2013Q3

REPORT INFORMATION
  Report Type: Spontaneous
  Country: US (occurrence: US)
  Receive Date: 20130806
  Receipt Date: 20130806
  Transmission Date: 20140515
  Serious: No
  Sender: FDA-Public Use
  Company Number: US-GLAXOSMITHKLINE-A1018881A

PATIENT
  Age: 73 Year
  Sex: Female

DRUGS (6)
  1. ADVAIR [Suspect]
     Indication: CHRONIC OBSTRUCTIVE PULMONARY DISEASE
     Dosage: 1PUFF TWICE PER DAY
     Route: 055
     Dates: start: 1996
  2. FLUTICASONE [Concomitant]
     Route: 045
  3. ZOLOFT [Concomitant]
  4. TOPROL XL [Concomitant]
  5. TRIAMTERENE [Concomitant]
  6. VITAMINS [Concomitant]

REACTIONS (4)
  - Oral discomfort [Not Recovered/Not Resolved]
  - Oral pain [Unknown]
  - Mouth ulceration [Unknown]
  - Tooth fracture [Unknown]
